FAERS Safety Report 15783649 (Version 1)
Quarter: 2019Q1

REPORT INFORMATION
  Report Type: Other
  Country: JP (occurrence: JP)
  Receive Date: 20190102
  Receipt Date: 20190102
  Transmission Date: 20190417
  Serious: Yes (Life-Threatening, Hospitalization)
  Sender: FDA-Public Use
  Company Number: JP-GE HEALTHCARE LIFE SCIENCES-2018CSU005302

PATIENT

DRUGS (3)
  1. OMNIPAQUE [Suspect]
     Active Substance: IOHEXOL
     Indication: PERIPHERAL ARTERIAL OCCLUSIVE DISEASE
  2. PREDONINE [Concomitant]
     Active Substance: PREDNISOLONE
     Indication: PREMEDICATION
     Dosage: UNK
     Route: 048
     Dates: start: 20180205, end: 20180205
  3. OMNIPAQUE [Suspect]
     Active Substance: IOHEXOL
     Indication: DIAGNOSTIC PROCEDURE
     Dosage: 74 ML, SINGLE
     Route: 042
     Dates: start: 20180205, end: 20180205

REACTIONS (5)
  - Musculoskeletal stiffness [Recovered/Resolved]
  - Loss of consciousness [Recovered/Resolved]
  - Vomiting [Unknown]
  - Blood pressure decreased [Recovered/Resolved]
  - Pruritus [Unknown]

NARRATIVE: CASE EVENT DATE: 20180205
